FAERS Safety Report 5341880-5 (Version None)
Quarter: 2007Q2

REPORT INFORMATION
  Report Type: 
  Country: None (occurrence: None)
  Receive Date: 20070529
  Receipt Date: 20070529
  Transmission Date: 20071010
  Serious: Yes (Hospitalization)
  Sender: FDA-Public Use
  Company Number: None

PATIENT
  Sex: Male
  Weight: 76.8 kg

DRUGS (5)
  1. CYCLOPHOSPHAMIDE [Suspect]
     Dosage: 1440 MG
  2. DOXORUBICIN HYDROCHLORIDE [Suspect]
     Dosage: 96 MG
  3. PREDNISONE TAB [Suspect]
     Dosage: 400 MG
  4. RITUXIMAB (MOAB C2B8 ANTI CD20, CHIMERIC) [Suspect]
     Dosage: 720 MG
  5. VINCRISTINE SULFATE [Suspect]
     Dosage: 2 MG

REACTIONS (9)
  - ABDOMINAL PAIN [None]
  - ABDOMINAL TENDERNESS [None]
  - BOWEL SOUNDS ABNORMAL [None]
  - INFUSION RELATED REACTION [None]
  - OBSTRUCTION [None]
  - RENAL FAILURE ACUTE [None]
  - SUPRAPUBIC PAIN [None]
  - TUMOUR LYSIS SYNDROME [None]
  - URINARY RETENTION [None]
